FAERS Safety Report 13659295 (Version 3)
Quarter: 2018Q1

REPORT INFORMATION
  Report Type: Spontaneous
  Country: GB (occurrence: GB)
  Receive Date: 20170616
  Receipt Date: 20180227
  Transmission Date: 20180508
  Serious: Yes (Other)
  Sender: FDA-Public Use
  Company Number: GB-JNJFOC-20170607261

PATIENT
  Age: 11 Year
  Sex: Male
  Weight: 49 kg

DRUGS (4)
  1. CONCERTA [Suspect]
     Active Substance: METHYLPHENIDATE HYDROCHLORIDE
     Indication: ATTENTION DEFICIT/HYPERACTIVITY DISORDER
     Route: 048
     Dates: start: 20170522, end: 20170522
  2. MEDIKINET XL [Concomitant]
     Active Substance: METHYLPHENIDATE HYDROCHLORIDE
     Indication: ORAL MUCOSAL BLISTERING
     Route: 065
  3. CIRCADIN [Concomitant]
     Active Substance: MELATONIN
     Route: 065
  4. EQUASYM [Concomitant]
     Active Substance: METHYLPHENIDATE HYDROCHLORIDE
     Indication: ATTENTION DEFICIT/HYPERACTIVITY DISORDER
     Route: 065

REACTIONS (4)
  - Oculogyric crisis [Recovered/Resolved]
  - Malaise [Recovered/Resolved]
  - Dizziness [Recovered/Resolved]
  - Product substitution issue [Unknown]

NARRATIVE: CASE EVENT DATE: 20170522
